FAERS Safety Report 18534142 (Version 7)
Quarter: 2022Q2

REPORT INFORMATION
  Report Type: Spontaneous
  Country: US (occurrence: US)
  Receive Date: 20201123
  Receipt Date: 20220418
  Transmission Date: 20220720
  Serious: Yes (Hospitalization, Other)
  Sender: FDA-Public Use
  Company Number: US-TEVA-2020-US-1851890

PATIENT
  Age: 59 Year
  Sex: Male
  Weight: 127 kg

DRUGS (55)
  1. HYDROCHLOROTHIAZIDE\VALSARTAN [Suspect]
     Active Substance: HYDROCHLOROTHIAZIDE\VALSARTAN
     Indication: Hypertension
     Dosage: DOSAGE: 320 MG/12.5MG
     Route: 048
     Dates: start: 20130603, end: 20161004
  2. HYDROCHLOROTHIAZIDE\VALSARTAN [Suspect]
     Active Substance: HYDROCHLOROTHIAZIDE\VALSARTAN
     Indication: Hypertension
     Dosage: DOSAGE: 320 MG/12.5MG
     Route: 048
     Dates: start: 20161029, end: 20171127
  3. HYDROCHLOROTHIAZIDE\VALSARTAN [Suspect]
     Active Substance: HYDROCHLOROTHIAZIDE\VALSARTAN
     Indication: Hypertension
     Dosage: DOSAGE: 320 MG/12.5MG
     Route: 048
     Dates: start: 20161029, end: 20171127
  4. HYDROCHLOROTHIAZIDE\VALSARTAN [Suspect]
     Active Substance: HYDROCHLOROTHIAZIDE\VALSARTAN
     Indication: Hypertension
     Dosage: DOSAGE: 320 MG/12.5MG?VALSARTAN/HYDROCHLOROTHIAZIDE INGENUS PHARMACEUTICALS
     Route: 048
     Dates: start: 20161029, end: 20171127
  5. DIOVAN HCT [Suspect]
     Active Substance: HYDROCHLOROTHIAZIDE\VALSARTAN
     Dosage: 1 DOSAGE FORMS DAILY; 320-12.5 MG
     Route: 048
     Dates: start: 20121203
  6. ZYLOPRIM [Concomitant]
     Active Substance: ALLOPURINOL
     Indication: Gastrooesophageal reflux disease
     Dosage: DOSAGE: 300 MG ONCE A DAY
     Route: 065
     Dates: start: 2007, end: 20171127
  7. ZYLOPRIM [Concomitant]
     Active Substance: ALLOPURINOL
     Dosage: 600 MILLIGRAM DAILY;
     Route: 048
  8. GABAPENTIN [Concomitant]
     Active Substance: GABAPENTIN
     Indication: Prophylaxis
     Dosage: DOSAGE: 100 MG ONCE A DAY
     Dates: start: 2007, end: 20171127
  9. NEXIUM [Concomitant]
     Active Substance: ESOMEPRAZOLE MAGNESIUM
     Indication: Gastrooesophageal reflux disease
     Dosage: DOSAGE: 40 MG ONCE A DAY
     Dates: start: 2010, end: 20171127
  10. OMEPRAZOLE [Concomitant]
     Active Substance: OMEPRAZOLE
     Indication: Gastrooesophageal reflux disease
     Dosage: DOSAGE: 20MG ONCE A DAY
     Dates: start: 2007, end: 2010
  11. SIMVASTATIN [Concomitant]
     Active Substance: SIMVASTATIN
     Indication: Blood cholesterol increased
     Dosage: DOSAGE: 20 MG ONCE A DAY.
     Dates: start: 2007, end: 20171127
  12. FUROSEMIDE [Concomitant]
     Active Substance: FUROSEMIDE
     Indication: Renal disorder
     Dosage: DOSAGE: 80 MG ONCE A DAY.
     Dates: start: 2017, end: 20171127
  13. FUROSEMIDE [Concomitant]
     Active Substance: FUROSEMIDE
     Indication: Liver disorder
  14. DIOVAN [Concomitant]
     Active Substance: VALSARTAN
     Indication: Hypertension
     Dosage: DOSAGE: 320 MG ONCE A DAY
     Dates: start: 2002, end: 2016
  15. GLIMEPIRIDE [Concomitant]
     Active Substance: GLIMEPIRIDE
     Indication: Diabetes mellitus
     Dosage: DOSAGE: 4 MG ONCE A DAY
     Dates: start: 2004, end: 20171127
  16. METFORMIN [Concomitant]
     Active Substance: METFORMIN HYDROCHLORIDE
     Indication: Diabetes mellitus
     Dosage: DOSAGE: 750 MG ONCE A DAY
     Dates: start: 2004, end: 20171127
  17. KLOR-CON [Concomitant]
     Active Substance: POTASSIUM CHLORIDE
     Indication: Renal disorder
     Dosage: DOSAGE: 20 MEQ TABLET ONCE A DAY.
     Route: 065
     Dates: start: 2008, end: 20171127
  18. KLOR-CON [Concomitant]
     Active Substance: POTASSIUM CHLORIDE
     Indication: Liver disorder
     Dosage: 40 MILLIEQUIVALENTS DAILY;
     Route: 048
  19. KLOR-CON [Concomitant]
     Active Substance: POTASSIUM CHLORIDE
     Indication: Blood potassium decreased
  20. PLAVIX [Concomitant]
     Active Substance: CLOPIDOGREL BISULFATE
     Indication: Cerebrovascular accident
     Dates: start: 2007, end: 20081127
  21. TYLENOL [Concomitant]
     Active Substance: ACETAMINOPHEN
     Indication: Pain
     Dosage: DOSAGE: 200 MG AS NEEDED
     Dates: end: 20171127
  22. FISH OIL [Concomitant]
     Active Substance: FISH OIL
     Indication: Cardiac disorder
     Dosage: 1000 MILLIGRAM DAILY; DOSAGE: 1,000 MG ONCE A DAY
     Route: 065
     Dates: end: 20171127
  23. ZANTAC [Concomitant]
     Active Substance: RANITIDINE HYDROCHLORIDE
     Indication: Gastrooesophageal reflux disease
     Dosage: DOSAGE: 150MG AS NEEDED
     Dates: start: 1980, end: 20171127
  24. LIPITOR [Concomitant]
     Active Substance: ATORVASTATIN CALCIUM
     Dosage: 20 MILLIGRAM DAILY;
     Route: 048
  25. TEMOVATE [Concomitant]
     Active Substance: CLOBETASOL PROPIONATE
     Indication: Rash
     Dosage: 0.05 PERCENT APPLY TOPICALLY 2 (TWO) TIMES A DAY AS NEEDED
     Route: 061
     Dates: start: 20170413
  26. TEMOVATE [Concomitant]
     Active Substance: CLOBETASOL PROPIONATE
     Indication: Dermatitis contact
  27. COLCHICINE [Concomitant]
     Active Substance: COLCHICINE
     Indication: Gout
     Dosage: 12 MILLIGRAM DAILY; PRN
     Route: 048
  28. FLONASE [Concomitant]
     Active Substance: FLUTICASONE PROPIONATE
     Indication: Acute sinusitis
     Dosage: 50 MCG/ACTUTATION, 2 SPRAYS BY EACH NARE ROUTE DAILY
     Route: 045
     Dates: start: 20170110
  29. NORCO [Concomitant]
     Active Substance: ACETAMINOPHEN\HYDROCODONE BITARTRATE
     Indication: Pain
     Dosage: 5-325 MG PER TABLET 1-2 BY MOUTH EVERY 4-6 HOURS WHEN NECESSARY
     Route: 048
     Dates: start: 20171114
  30. MAGNESIUM OXIDE [Concomitant]
     Active Substance: MAGNESIUM OXIDE
     Indication: Hypomagnesaemia
     Dosage: 400 MILLIGRAM DAILY;
     Route: 048
     Dates: start: 20170420
  31. DEPO-MEDROL [Concomitant]
     Active Substance: METHYLPREDNISOLONE ACETATE
     Indication: Pruritus
     Dosage: 40 MILLIGRAM/MILLILITERS DAILY; ONCE FOR 1 DOSE
     Route: 030
     Dates: start: 20170928, end: 20170928
  32. DEPO-MEDROL [Concomitant]
     Active Substance: METHYLPREDNISOLONE ACETATE
     Indication: Dermatitis contact
  33. REGLAN [Concomitant]
     Active Substance: METOCLOPRAMIDE HYDROCHLORIDE
     Dosage: 20 MILLIGRAM DAILY;
     Route: 048
     Dates: start: 20171103
  34. SINGULAIR [Concomitant]
     Active Substance: MONTELUKAST SODIUM
     Dosage: 10 MILLIGRAM DAILY;
     Route: 048
  35. CRESTOR [Concomitant]
     Active Substance: ROSUVASTATIN CALCIUM
     Indication: Blood cholesterol increased
     Dosage: 10 MILLIGRAM DAILY; BY MOUTH NIGHTLY
     Route: 048
     Dates: start: 20170420
  36. BACTRIM DS [Concomitant]
     Active Substance: SULFAMETHOXAZOLE\TRIMETHOPRIM
     Dosage: 1 DOSAGE FORMS DAILY; 800-160 MG PER TABLET TAKE 1 TAB BY MOUTH DAILY
     Route: 048
     Dates: start: 20171027
  37. TESTOSTERONE [Concomitant]
     Active Substance: TESTOSTERONE
     Indication: Hypogonadism
     Dosage: 200MG/ML INJECTION INTO THE MUSCLE EVERY 14 DAYS
     Route: 030
     Dates: start: 20170829
  38. PHENERGAN [Concomitant]
     Active Substance: PROMETHAZINE HYDROCHLORIDE
     Indication: Nausea
     Dosage: 25MG EVERY 6 HOURS
     Route: 048
     Dates: start: 20170124, end: 20171103
  39. PHENERGAN [Concomitant]
     Active Substance: PROMETHAZINE HYDROCHLORIDE
     Indication: Vomiting
  40. VISTARIL [Concomitant]
     Active Substance: HYDROXYZINE PAMOATE
     Indication: Pruritus
     Dosage: 25-50MG 3 TIMES A DAY
     Route: 048
     Dates: start: 20170215, end: 20171120
  41. ZYRTEC [Concomitant]
     Active Substance: CETIRIZINE HYDROCHLORIDE
     Indication: Pruritus
     Dosage: 10 MILLIGRAM DAILY;
     Route: 048
     Dates: start: 20170414, end: 20171120
  42. LASIX [Concomitant]
     Active Substance: FUROSEMIDE
     Indication: Oedema
     Dosage: 40MG DAILY
     Route: 048
     Dates: start: 20170420
  43. GLUCOPHAGE [Concomitant]
     Active Substance: METFORMIN HYDROCHLORIDE
     Indication: Type 2 diabetes mellitus
     Dosage: 750 MILLIGRAM DAILY; EXTENDED RELEASE
     Route: 048
     Dates: start: 20170728
  44. VENTOLIN HFA [Concomitant]
     Active Substance: ALBUTEROL SULFATE
     Dosage: INHALE 2 PUFFS
     Route: 055
  45. PROAIR HFA [Concomitant]
     Active Substance: ALBUTEROL SULFATE
     Dosage: INHALER (2 PUFFS)
     Route: 055
  46. BROVANA [Concomitant]
     Active Substance: ARFORMOTEROL TARTRATE
     Dosage: NEBULIZATION AS NEEDED
     Route: 065
  47. PULMICORT TURBUHALER [Concomitant]
     Active Substance: BUDESONIDE
     Dosage: BY NEBULIZATION AS NEEDED
     Route: 065
  48. BUTALBITAL, ACETAMINOPHEN, AND CAFFEINE [Concomitant]
     Active Substance: ACETAMINOPHEN\BUTALBITAL\CAFFEINE
     Indication: Headache
     Dosage: 50-300-40 MG, CAPSULE EVERY 6 (SIX) HOURS AS NEEDED
     Route: 065
  49. CRISABOROLE [Concomitant]
     Active Substance: CRISABOROLE
     Indication: Hand dermatitis
     Dosage: 4 PERCENT DAILY;
     Route: 061
  50. TOPICORT [Concomitant]
     Active Substance: DESOXIMETASONE
     Route: 061
  51. TOPAMAX [Concomitant]
     Active Substance: TOPIRAMATE
     Dosage: 50 MILLIGRAM DAILY;
     Route: 048
  52. KENALOG [Concomitant]
     Active Substance: TRIAMCINOLONE ACETONIDE
     Route: 061
  53. AMITIZA [Concomitant]
     Active Substance: LUBIPROSTONE
     Indication: Constipation
     Dosage: 48 MICROGRAM DAILY;
     Route: 065
  54. VICTOZA [Concomitant]
     Active Substance: LIRAGLUTIDE
     Indication: Type 2 diabetes mellitus
     Dosage: 0.6 MG UNDER SKIN DAILY
     Route: 065
  55. ZITHROMAX [Concomitant]
     Active Substance: AZITHROMYCIN DIHYDRATE
     Indication: Acute sinusitis
     Dosage: 2 TABLETS (500 MG) ON DAY ONE FOLLOWED BY, 1 TABLET (250 MG) ONCE DAILY ON DAYS 2-5
     Route: 065

REACTIONS (3)
  - Colon cancer [Not Recovered/Not Resolved]
  - Pancreatic carcinoma [Not Recovered/Not Resolved]
  - Hepatic cancer [Not Recovered/Not Resolved]
